FAERS Safety Report 5979136-X (Version None)
Quarter: 2008Q4

REPORT INFORMATION
  Report Type: 
  Country: None (occurrence: None)
  Receive Date: 20081204
  Receipt Date: 20080213
  Transmission Date: 20090506
  Serious: No
  Sender: FDA-Public Use
  Company Number: US-ABBOTT-08P-163-0438387-00

PATIENT
  Sex: Male
  Weight: 93.07 kg

DRUGS (1)
  1. TRICOR [Suspect]
     Indication: HYPERLIPIDAEMIA
     Route: 048
     Dates: start: 20071213, end: 20071215

REACTIONS (2)
  - DIZZINESS [None]
  - RHINORRHOEA [None]
